FAERS Safety Report 14082864 (Version 1)
Quarter: 2017Q4

REPORT INFORMATION
  Report Type: Other
  Country: CA (occurrence: CA)
  Receive Date: 20171013
  Receipt Date: 20171013
  Transmission Date: 20180321
  Serious: Yes (Disabling)
  Sender: FDA-Public Use
  Company Number: CA-APOTEX-2017AP019536

PATIENT
  Age: 77 Year
  Sex: Male
  Weight: 59 kg

DRUGS (5)
  1. ONBREZ BREEZHALER [Concomitant]
     Active Substance: INDACATEROL
     Indication: PRODUCT USED FOR UNKNOWN INDICATION
     Dosage: UNK
     Route: 065
  2. SPIRIVA [Concomitant]
     Active Substance: TIOTROPIUM BROMIDE MONOHYDRATE
     Indication: PRODUCT USED FOR UNKNOWN INDICATION
     Dosage: UNK
     Route: 065
  3. APO-TERBINAFINE [Suspect]
     Active Substance: TERBINAFINE
     Indication: FUNGAL INFECTION
     Dosage: 250 MG, QD
     Route: 048
  4. LOTRIDERM [Concomitant]
     Active Substance: BETAMETHASONE DIPROPIONATE\CLOTRIMAZOLE
     Indication: PRODUCT USED FOR UNKNOWN INDICATION
     Dosage: UNK
     Route: 065
  5. ZOPICLONE [Concomitant]
     Active Substance: ZOPICLONE
     Indication: PRODUCT USED FOR UNKNOWN INDICATION
     Dosage: UNK
     Route: 065

REACTIONS (8)
  - Irritability [Recovered/Resolved]
  - Lymphocyte count abnormal [Recovered/Resolved]
  - Red blood cell count abnormal [Recovered/Resolved]
  - Restlessness [Recovered/Resolved]
  - Thinking abnormal [Recovered/Resolved]
  - Impulsive behaviour [Recovered/Resolved]
  - Agitation [Recovered/Resolved]
  - Mean cell volume abnormal [Recovered/Resolved]
